FAERS Safety Report 19089254 (Version 1)
Quarter: 2021Q2

REPORT INFORMATION
  Report Type: Spontaneous
  Country: US (occurrence: US)
  Receive Date: 20210403
  Receipt Date: 20210403
  Transmission Date: 20210717
  Serious: Yes (Other)
  Sender: FDA-Public Use
  Company Number: US-SA-2021SA108219

PATIENT
  Age: 20 Year
  Sex: Female

DRUGS (1)
  1. ZANTAC [Suspect]
     Active Substance: RANITIDINE HYDROCHLORIDE
     Indication: GASTROOESOPHAGEAL REFLUX DISEASE
     Dosage: 150 MG, QD
     Dates: start: 199610, end: 201701

REACTIONS (3)
  - Renal cancer stage II [Unknown]
  - Cervix carcinoma stage I [Unknown]
  - Uterine cancer [Unknown]

NARRATIVE: CASE EVENT DATE: 20010801
